FAERS Safety Report 6674807-4 (Version None)
Quarter: 2010Q2

REPORT INFORMATION
  Report Type: 
  Country: None (occurrence: None)
  Receive Date: 20100409
  Receipt Date: 20100329
  Transmission Date: 20101027
  Serious: Yes (Other)
  Sender: FDA-Public Use
  Company Number: GB-PFIZER INC-2010040819

PATIENT
  Age: 47 Year
  Sex: Male

DRUGS (9)
  1. XALATAN [Suspect]
     Indication: OPEN ANGLE GLAUCOMA
     Dosage: 1 DROP EVERY NIGHT IN BOTH EYES
     Route: 047
     Dates: start: 20070501
  2. RAMIPRIL [Concomitant]
  3. NITROGLYCERIN [Concomitant]
  4. BISOPROLOL [Concomitant]
  5. NICORANDIL [Concomitant]
  6. VENTOLIN [Concomitant]
  7. AMLODIPINE [Concomitant]
  8. ACETYLSALICYLIC ACID [Concomitant]
  9. SIMVASTATIN [Concomitant]

REACTIONS (2)
  - ASTHENOPIA [None]
  - DRY EYE [None]
